FAERS Safety Report 5837486-1 (Version None)
Quarter: 2008Q3

REPORT INFORMATION
  Report Type: 
  Country: None (occurrence: None)
  Receive Date: 20080807
  Receipt Date: 20080728
  Transmission Date: 20090109
  Serious: Yes (Hospitalization)
  Sender: FDA-Public Use
  Company Number: CA-ELI_LILLY_AND_COMPANY-CA200806003086

PATIENT
  Sex: Female

DRUGS (14)
  1. CYMBALTA [Suspect]
     Indication: MAJOR DEPRESSION
     Dosage: 60 MG, UNK
     Dates: start: 20080423, end: 20080522
  2. CYMBALTA [Suspect]
     Dosage: 1 D/F, UNK
     Dates: start: 20080709
  3. CELEXA [Concomitant]
     Dosage: 40 D/F, DAILY (1/D)
  4. EFFEXOR [Concomitant]
     Dosage: 112.5 D/F, DAILY (1/D)
  5. PANTOLOC                           /01263201/ [Concomitant]
     Dosage: 40 D/F, DAILY (1/D)
  6. TENORMIN [Concomitant]
     Dosage: 50 D/F, DAILY (1/D)
  7. RIVOTRIL [Concomitant]
     Dosage: 0.75 MG, 2/D
  8. RIVOTRIL [Concomitant]
     Dosage: 1 MG, DAILY (1/D)
  9. RIVOTRIL [Concomitant]
     Dosage: 2 MG, EACH EVENING
  10. LIPITOR [Concomitant]
     Dosage: 20 D/F, DAILY (1/D)
  11. COLACE [Concomitant]
     Dosage: 2 D/F, EACH EVENING
  12. SENOKOT [Concomitant]
     Dosage: 2 D/F, EACH EVENING
  13. ZYPREXA [Concomitant]
     Dosage: 10 MG, EACH EVENING
  14. ASAPHEN [Concomitant]
     Dosage: 80 MG, DAILY (1/D)

REACTIONS (1)
  - CHOLECYSTITIS [None]
